FAERS Safety Report 8517680-1 (Version None)
Quarter: 2012Q3

REPORT INFORMATION
  Report Type: 
  Country: None (occurrence: None)
  Receive Date: 20120718
  Receipt Date: 20120709
  Transmission Date: 20120928
  Serious: Yes (Other)
  Sender: FDA-Public Use
  Company Number: FR-ASTRAZENECA-2012SE48023

PATIENT
  Age: 22907 Day
  Sex: Male

DRUGS (5)
  1. ESCITALOPRAM [Interacting]
     Route: 048
     Dates: start: 20120704
  2. CORTEOL [Concomitant]
     Indication: GLAUCOMA
  3. ESCITALOPRAM [Interacting]
     Route: 048
     Dates: start: 20120626, end: 20120703
  4. TENORMIN [Suspect]
     Indication: ARRHYTHMIA
     Route: 048
  5. FLECAINIDE ACETATE [Interacting]
     Indication: ARRHYTHMIA
     Route: 048

REACTIONS (3)
  - TACHYCARDIA [None]
  - CHEST DISCOMFORT [None]
  - DRUG INTERACTION [None]
